FAERS Safety Report 4996565-1 (Version None)
Quarter: 2006Q2

REPORT INFORMATION
  Report Type: 
  Country: None (occurrence: None)
  Receive Date: 20060505
  Receipt Date: 20060501
  Transmission Date: 20061013
  Serious: Yes (Other)
  Sender: FDA-Public Use
  Company Number: USA-2006-0024138

PATIENT
  Sex: Male

DRUGS (2)
  1. OXYCONTIN [Suspect]
  2. SOMA [Concomitant]

REACTIONS (1)
  - COGNITIVE DISORDER [None]
